FAERS Safety Report 25511237 (Version 1)
Quarter: 2025Q3

REPORT INFORMATION
  Report Type: Spontaneous
  Country: EU (occurrence: None)
  Receive Date: 20250703
  Receipt Date: 20250703
  Transmission Date: 20251021
  Serious: Yes (Hospitalization, Other)
  Sender: B. BRAUN MEDICAL INC.
  Company Number: None

PATIENT
  Age: 37 Year
  Sex: Female

DRUGS (3)
  1. ACETAMINOPHEN [Suspect]
     Active Substance: ACETAMINOPHEN
  2. BRICANYL [Suspect]
     Active Substance: TERBUTALINE SULFATE
  3. BUDESONIDE\FORMOTEROL [Suspect]
     Active Substance: BUDESONIDE\FORMOTEROL

REACTIONS (9)
  - Hypokalaemia [Recovering/Resolving]
  - Sinus tachycardia [Recovering/Resolving]
  - Iron deficiency [Recovering/Resolving]
  - Normocytic anaemia [Recovering/Resolving]
  - Intentional overdose [Recovering/Resolving]
  - Folate deficiency [Recovering/Resolving]
  - Toxicity to various agents [Recovering/Resolving]
  - Suicide attempt [Recovering/Resolving]
  - Vitamin B12 deficiency [Recovering/Resolving]

NARRATIVE: CASE EVENT DATE: 20230803
